FAERS Safety Report 4969493-5 (Version None)
Quarter: 2006Q1

REPORT INFORMATION
  Report Type: 
  Country: None (occurrence: None)
  Receive Date: 20060328
  Receipt Date: 20060317
  Transmission Date: 20060701
  Serious: Yes (Hospitalization)
  Sender: FDA-Public Use
  Company Number: 2006BH005837

PATIENT
  Age: 51 Year
  Sex: Male
  Weight: 84 kg

DRUGS (5)
  1. GAMMAGARD LIQUID [Suspect]
     Indication: COMBINED IMMUNODEFICIENCY
     Dosage: 40 GM;EVERY 3 WK;IV
     Route: 042
     Dates: start: 20060202
  2. COUMADIN [Concomitant]
  3. REMERON [Concomitant]
  4. VICODIN [Concomitant]
  5. LASIX [Concomitant]

REACTIONS (3)
  - DENTAL OPERATION [None]
  - INFECTION [None]
  - SEPSIS [None]
